FAERS Safety Report 25008695 (Version 1)
Quarter: 2025Q1

REPORT INFORMATION
  Report Type: Spontaneous
  Country: PL (occurrence: PL)
  Receive Date: 20250225
  Receipt Date: 20250225
  Transmission Date: 20250409
  Serious: Yes (Hospitalization)
  Sender: MYLAN
  Company Number: PL-MYLANLABS-2025M1015261

PATIENT
  Age: 36 Year
  Sex: Male

DRUGS (15)
  1. MYCOPHENOLATE MOFETIL [Suspect]
     Active Substance: MYCOPHENOLATE MOFETIL
     Indication: Immunosuppressant drug therapy
  2. NELARABINE [Suspect]
     Active Substance: NELARABINE
     Indication: T-cell type acute leukaemia
  3. CYCLOPHOSPHAMIDE [Suspect]
     Active Substance: CYCLOPHOSPHAMIDE
     Indication: T-cell type acute leukaemia
  4. CYCLOPHOSPHAMIDE [Suspect]
     Active Substance: CYCLOPHOSPHAMIDE
     Indication: Immunosuppressant drug therapy
  5. ETOPOSIDE [Suspect]
     Active Substance: ETOPOSIDE
     Indication: T-cell type acute leukaemia
  6. TACROLIMUS [Suspect]
     Active Substance: TACROLIMUS
     Indication: Immunosuppressant drug therapy
  7. PROPAFENONE [Concomitant]
     Active Substance: PROPAFENONE
     Indication: Symptomatic treatment
  8. PREDNISONE [Concomitant]
     Active Substance: PREDNISONE
     Indication: Symptomatic treatment
  9. COLCHICINE [Concomitant]
     Active Substance: COLCHICINE
     Indication: Symptomatic treatment
  10. FLUDARABINE [Concomitant]
     Active Substance: FLUDARABINE PHOSPHATE
     Indication: T-cell type acute leukaemia
  11. FLUDARABINE [Concomitant]
     Active Substance: FLUDARABINE PHOSPHATE
     Indication: Bone marrow conditioning regimen
  12. CYTARABINE [Concomitant]
     Active Substance: CYTARABINE
     Indication: T-cell type acute leukaemia
  13. MITOXANTRONE [Concomitant]
     Active Substance: MITOXANTRONE HYDROCHLORIDE
     Indication: T-cell type acute leukaemia
  14. TREOSULFAN [Concomitant]
     Active Substance: TREOSULFAN
     Indication: Bone marrow conditioning regimen
  15. THIOTEPA [Concomitant]
     Active Substance: THIOTEPA
     Indication: Bone marrow conditioning regimen

REACTIONS (4)
  - Pancytopenia [Unknown]
  - Cytokine release syndrome [Unknown]
  - Venoocclusive liver disease [Unknown]
  - Venoocclusive disease [Unknown]
